FAERS Safety Report 8475047-9 (Version None)
Quarter: 2012Q2

REPORT INFORMATION
  Report Type: 
  Country: None (occurrence: None)
  Receive Date: 20120628
  Receipt Date: 20120626
  Transmission Date: 20120825
  Serious: Yes (Hospitalization, Other)
  Sender: FDA-Public Use
  Company Number: BE-PFIZER INC-2012130678

PATIENT
  Age: 61 Year
  Sex: Male
  Weight: 89 kg

DRUGS (1)
  1. SOLU-MEDROL [Suspect]
     Indication: URTICARIA
     Dosage: 125 MG, UNK
     Route: 030
     Dates: start: 20120507, end: 20120605

REACTIONS (2)
  - LYMPHANGITIS [None]
  - INJECTION SITE ABSCESS [None]
